FAERS Safety Report 12832538 (Version 1)
Quarter: 2016Q4

REPORT INFORMATION
  Report Type: Spontaneous
  Country: US (occurrence: US)
  Receive Date: 20161010
  Receipt Date: 20161010
  Transmission Date: 20170207
  Serious: No
  Sender: FDA-Public Use
  Company Number: US-JAZZ-2016-US-013511

PATIENT
  Sex: Female

DRUGS (32)
  1. XYREM [Suspect]
     Active Substance: SODIUM OXYBATE
     Indication: NARCOLEPSY
     Dosage: 2.25 G, BID
     Route: 048
     Dates: start: 201302, end: 201302
  2. GINGER ROOT [Concomitant]
     Active Substance: GINGER
  3. LOTEMAX [Concomitant]
     Active Substance: LOTEPREDNOL ETABONATE
  4. ZOCOR [Concomitant]
     Active Substance: SIMVASTATIN
  5. XYREM [Suspect]
     Active Substance: SODIUM OXYBATE
     Indication: CATAPLEXY
     Dosage: DOSE ADJUSTMENTS
     Route: 048
     Dates: start: 201302, end: 201410
  6. PROBIOTIC [Concomitant]
     Active Substance: PROBIOTICS NOS
  7. PROVIGIL [Concomitant]
     Active Substance: MODAFINIL
  8. LAMICTAL [Concomitant]
     Active Substance: LAMOTRIGINE
  9. PROZAC [Concomitant]
     Active Substance: FLUOXETINE HYDROCHLORIDE
  10. KLONOPIN [Concomitant]
     Active Substance: CLONAZEPAM
  11. ADDERALL [Concomitant]
     Active Substance: AMPHETAMINE ASPARTATE\AMPHETAMINE SULFATE\DEXTROAMPHETAMINE SACCHARATE\DEXTROAMPHETAMINE SULFATE
  12. BIAXIN [Concomitant]
     Active Substance: CLARITHROMYCIN
  13. VYVANSE [Suspect]
     Active Substance: LISDEXAMFETAMINE DIMESYLATE
     Indication: PRODUCT USED FOR UNKNOWN INDICATION
     Route: 048
  14. L-LYSINE [Concomitant]
     Active Substance: LYSINE
  15. LICORICE ROOT [Concomitant]
     Active Substance: LICORICE
  16. OMEGA 3 [Concomitant]
     Active Substance: OMEGA-3 FATTY ACIDS
  17. BACLOFEN. [Concomitant]
     Active Substance: BACLOFEN
  18. NUVIGIL [Concomitant]
     Active Substance: ARMODAFINIL
  19. VITAMIN D3 [Concomitant]
     Active Substance: CHOLECALCIFEROL
  20. TRAZODONE [Concomitant]
     Active Substance: TRAZODONE HYDROCHLORIDE
  21. SUBOXONE [Concomitant]
     Active Substance: BUPRENORPHINE HYDROCHLORIDE\NALOXONE HYDROCHLORIDE
  22. TYLENOL EXTRA STRENGTH [Concomitant]
     Active Substance: ACETAMINOPHEN
  23. XYREM [Suspect]
     Active Substance: SODIUM OXYBATE
     Dosage: 5 G, BID
     Route: 048
     Dates: start: 201410
  24. MARIJUANA [Concomitant]
     Active Substance: CANNABIS SATIVA SUBSP. INDICA TOP
  25. PREVACID [Concomitant]
     Active Substance: LANSOPRAZOLE
  26. PRILOSEC [Concomitant]
     Active Substance: OMEPRAZOLE MAGNESIUM
  27. FLONASE [Concomitant]
     Active Substance: FLUTICASONE PROPIONATE
  28. FLAGYL [Concomitant]
     Active Substance: METRONIDAZOLE\METRONIDAZOLE HYDROCHLORIDE
  29. VITAMIN B12 [Concomitant]
     Active Substance: CYANOCOBALAMIN
  30. COENZYME Q10 [Concomitant]
     Active Substance: UBIDECARENONE
  31. MULTIVITAMIN [Concomitant]
     Active Substance: VITAMINS
  32. ATORVASTATIN [Concomitant]
     Active Substance: ATORVASTATIN

REACTIONS (12)
  - Thinking abnormal [Not Recovered/Not Resolved]
  - Pulse abnormal [Not Recovered/Not Resolved]
  - Fatigue [Not Recovered/Not Resolved]
  - Fall [Recovered/Resolved]
  - Wrong technique in product usage process [Unknown]
  - Dehydration [Not Recovered/Not Resolved]
  - Renal disorder [Recovered/Resolved]
  - Large intestine polyp [Recovered/Resolved]
  - Heart rate increased [Recovering/Resolving]
  - Dyspnoea [Not Recovered/Not Resolved]
  - Back disorder [Not Recovered/Not Resolved]
  - Anxiety [Not Recovered/Not Resolved]
